FAERS Safety Report 9269694 (Version 2)
Quarter: 2013Q2

REPORT INFORMATION
  Report Type: Report from Study
  Country: JP (occurrence: JP)
  Receive Date: 20130503
  Receipt Date: 20130522
  Transmission Date: 20140414
  Serious: Yes (Hospitalization, Other)
  Sender: FDA-Public Use
  Company Number: PHHY2013JP041960

PATIENT
  Age: 83 Year
  Sex: Female

DRUGS (11)
  1. EXELON [Suspect]
     Dosage: 4.5 MG, DAILY
     Route: 062
     Dates: start: 20120615, end: 20120712
  2. EXELON [Suspect]
     Dosage: 9 MG, DAILY
     Dates: start: 20120713, end: 20120809
  3. EXELON [Suspect]
     Dosage: 13.5 MG, DAILY
     Route: 062
     Dates: start: 20120810, end: 20120830
  4. EXELON [Suspect]
     Dosage: 18 MG, DAILY
     Route: 062
     Dates: start: 20120831, end: 20121106
  5. ARICEPT [Concomitant]
     Indication: DEMENTIA ALZHEIMER^S TYPE
     Dosage: 5 MG, UNK
     Route: 048
     Dates: start: 20120614
  6. ONEALFA [Concomitant]
     Dosage: 1 UG, UNK
     Route: 048
  7. EVISTA [Concomitant]
     Dosage: 60 MG, UNK
     Route: 048
  8. NEXIUM//ESOMEPRAZOLE MAGNESIUM [Concomitant]
     Dosage: 20 MG, UNK
     Route: 048
  9. SERMION [Concomitant]
     Dosage: 15 MG, UNK
     Route: 048
  10. NEUROTROPIN [Concomitant]
     Dosage: 4 MG, UNK
     Route: 048
  11. HYPEN [Concomitant]
     Dosage: 400 MG, UNK
     Route: 048

REACTIONS (3)
  - Femoral neck fracture [Recovering/Resolving]
  - Bone pain [Unknown]
  - Fall [Unknown]
